FAERS Safety Report 16333685 (Version 1)
Quarter: 2019Q2

REPORT INFORMATION
  Report Type: Spontaneous
  Country: US (occurrence: US)
  Receive Date: 20190520
  Receipt Date: 20190520
  Transmission Date: 20190711
  Serious: No
  Sender: FDA-Public Use
  Company Number: US-BAYER-2019-092462

PATIENT
  Age: 28 Year
  Sex: Female

DRUGS (6)
  1. BEYAZ [Suspect]
     Active Substance: DROSPIRENONE\ETHINYL ESTRADIOL\LEVOMEFOLATE CALCIUM
     Indication: ANXIETY
  2. BEYAZ [Suspect]
     Active Substance: DROSPIRENONE\ETHINYL ESTRADIOL\LEVOMEFOLATE CALCIUM
     Indication: HORMONE LEVEL ABNORMAL
     Dosage: UNK UNK, QD
     Route: 048
     Dates: start: 2007
  3. YAZ [Suspect]
     Active Substance: DROSPIRENONE\ETHINYL ESTRADIOL
     Indication: BALANCE DISORDER
  4. BEYAZ [Suspect]
     Active Substance: DROSPIRENONE\ETHINYL ESTRADIOL\LEVOMEFOLATE CALCIUM
     Indication: BALANCE DISORDER
  5. YAZ [Suspect]
     Active Substance: DROSPIRENONE\ETHINYL ESTRADIOL
     Indication: ANXIETY
  6. YAZ [Suspect]
     Active Substance: DROSPIRENONE\ETHINYL ESTRADIOL
     Indication: HORMONE LEVEL ABNORMAL
     Dosage: UNK, QD
     Route: 048
     Dates: start: 2019

REACTIONS (8)
  - Product use in unapproved indication [None]
  - Product use in unapproved indication [None]
  - Drug ineffective for unapproved indication [None]
  - Off label use [None]
  - Therapeutic response unexpected [None]
  - Anxiety [Not Recovered/Not Resolved]
  - Emotional disorder [Not Recovered/Not Resolved]
  - Constipation [Not Recovered/Not Resolved]

NARRATIVE: CASE EVENT DATE: 2019
